FAERS Safety Report 7160404-3 (Version None)
Quarter: 2010Q4

REPORT INFORMATION
  Report Type: 
  Country: None (occurrence: None)
  Receive Date: 20101214
  Receipt Date: 20091209
  Transmission Date: 20110411
  Serious: No
  Sender: FDA-Public Use
  Company Number: US-AMGEN-KDL379485

PATIENT

DRUGS (4)
  1. ENBREL [Suspect]
     Indication: PSORIATIC ARTHROPATHY
     Dosage: 50 MG, 2 TIMES/WK
     Route: 058
  2. ENBREL [Suspect]
     Indication: PSORIASIS
  3. ENBREL [Suspect]
     Indication: PRODUCT USED FOR UNKNOWN INDICATION
  4. ADALIMUMAB [Suspect]
     Dosage: UNK UNK, UNK
     Dates: start: 20090101

REACTIONS (17)
  - ARTHRALGIA [None]
  - BLISTER [None]
  - DERMATITIS ACNEIFORM [None]
  - DIZZINESS [None]
  - HEADACHE [None]
  - JOINT SWELLING [None]
  - LOCAL SWELLING [None]
  - MUSCULAR WEAKNESS [None]
  - NAIL DISORDER [None]
  - NAIL GROWTH ABNORMAL [None]
  - NODULE ON EXTREMITY [None]
  - ONYCHOMADESIS [None]
  - PAIN IN EXTREMITY [None]
  - SECRETION DISCHARGE [None]
  - SKIN EXFOLIATION [None]
  - SKIN FISSURES [None]
  - URTICARIA [None]
